FAERS Safety Report 21495922 (Version 1)
Quarter: 2022Q4

REPORT INFORMATION
  Report Type: Spontaneous
  Country: GB (occurrence: GB)
  Receive Date: 20221022
  Receipt Date: 20221022
  Transmission Date: 20230113
  Serious: Yes (Other)
  Sender: FDA-Public Use
  Company Number: None

PATIENT
  Age: 88 Year
  Sex: Female
  Weight: 66 kg

DRUGS (22)
  1. DOXAZOSIN [Suspect]
     Active Substance: DOXAZOSIN MESYLATE
     Indication: Product used for unknown indication
     Dosage: 2 MILLIGRAM DAILY; 2 MG, OD
     Dates: start: 20220324
  2. AMLODIPINE [Concomitant]
     Active Substance: AMLODIPINE BESYLATE
     Indication: Product used for unknown indication
     Dosage: 1 DOSAGE FORMS DAILY; 1 DF, OD
     Dates: start: 20220113
  3. ATENOLOL [Concomitant]
     Active Substance: ATENOLOL
     Indication: Product used for unknown indication
     Dosage: 2 DOSAGE FORMS DAILY; 2 DF, OD
     Dates: start: 20201208
  4. FLUTICASONE FUROATE [Concomitant]
     Active Substance: FLUTICASONE FUROATE
     Indication: Product used for unknown indication
     Dosage: FREQUENCY : OD
     Dates: start: 20201208
  5. BENDROFLUMETHIAZIDE [Concomitant]
     Active Substance: BENDROFLUMETHIAZIDE
     Indication: Product used for unknown indication
     Dosage: 1 DOSAGE FORMS DAILY; EACH MORNING, 1 DF, OD
     Dates: start: 20220113
  6. BUPRENORPHINE [Concomitant]
     Active Substance: BUPRENORPHINE
     Indication: Product used for unknown indication
     Dosage: APPLY, UNIT DOSE : 1 DF, FREQUENCY :1 IN 1 WEEK
     Dates: start: 20220809
  7. CAPSAICIN [Concomitant]
     Active Substance: CAPSAICIN
     Indication: Product used for unknown indication
     Dosage: APPLY, FREQUENCY : 4 TIMES A DAY
     Dates: start: 20220809
  8. CETIRIZINE [Concomitant]
     Active Substance: CETIRIZINE HYDROCHLORIDE
     Indication: Product used for unknown indication
     Dosage: DAILY, 1 DF, FREQUENCY: AS REQUIRED
     Dates: start: 20220113
  9. CETRABEN [Concomitant]
     Indication: Product used for unknown indication
     Dosage: USE AS DIRECTED, EMOLLIENT CREAM
     Dates: start: 20201019
  10. CIPROFLOXACIN [Concomitant]
     Active Substance: CIPROFLOXACIN
     Indication: Product used for unknown indication
     Dosage: 4 GTT DAILY; AS DIRECTED, UNIT DOSE: 1 GTT, FREQUENCY : 4 TIMES A DAY, DURATION : 5 DAYS
     Dates: start: 20220816, end: 20220821
  11. CLOBETASONE BUTYRATE [Concomitant]
     Active Substance: CLOBETASONE BUTYRATE
     Indication: Product used for unknown indication
     Dosage: MODERATE POTENCY STEROID - APPLY AS DIRECTED, FREQUENCY : BD, DURATION : 30 DAYS
     Dates: start: 20220831, end: 20220930
  12. CLOPIDOGREL [Concomitant]
     Active Substance: CLOPIDOGREL BISULFATE
     Indication: Product used for unknown indication
     Dosage: 1 DOSAGE FORMS DAILY; 1 DF, OD
     Dates: start: 20220113
  13. CLOTRIMAZOLE [Concomitant]
     Active Substance: CLOTRIMAZOLE
     Indication: Fungal infection
     Dosage: APPLY 2-3 TIMES/DAY
     Dates: start: 20221006
  14. DERMOL [Concomitant]
     Active Substance: BENZALKONIUM CHLORIDE\CHLORHEXIDINE HYDROCHLORIDE\ISOPROPYL MYRISTATE\PARAFFIN
     Indication: Dry skin prophylaxis
     Dosage: APPLY FREQUENTLY
     Dates: start: 20220926
  15. FENBID [Concomitant]
     Indication: Product used for unknown indication
     Dosage: APPLY 3 TIMES/DAY
     Dates: start: 20220324
  16. FEXOFENADINE [Concomitant]
     Active Substance: FEXOFENADINE HYDROCHLORIDE
     Indication: Product used for unknown indication
     Dosage: 1 DOSAGE FORMS DAILY; 1 DF, OD, DURATION : 30 DAYS
     Dates: start: 20220816, end: 20220915
  17. KETOCONAZOLE [Concomitant]
     Active Substance: KETOCONAZOLE
     Indication: Product used for unknown indication
     Dosage: USE WHEN WASHING HAIR, LEAVE ON FO...FREQUENCY : 2 IN 1 WEEK
     Dates: start: 20221006
  18. MOMETASONE [Concomitant]
     Active Substance: MOMETASONE
     Indication: Product used for unknown indication
     Dosage: APPLY, OD, DURATION : 28 DAYS
     Dates: start: 20220901, end: 20220929
  19. ACETAMINOPHEN [Concomitant]
     Active Substance: ACETAMINOPHEN
     Indication: Product used for unknown indication
     Dosage: TAKE 1 OR 2 4 TIMES/DAY
     Dates: start: 20220324
  20. PERINDOPRIL ERBUMINE [Concomitant]
     Active Substance: PERINDOPRIL ERBUMINE
     Indication: Product used for unknown indication
     Dosage: 1 DOSAGE FORMS DAILY; 1 DF, OD
     Dates: start: 20220113
  21. SEVODYNE [Concomitant]
     Indication: Product used for unknown indication
     Dosage: APPLY, 1 DF, FREQUENCY : 1 IN 1 WEEK
     Dates: start: 20220627
  22. SIMVASTATIN [Concomitant]
     Active Substance: SIMVASTATIN
     Indication: Product used for unknown indication
     Dosage: 1 DOSAGE FORMS DAILY; AT NIGHT, 1 DF, OD
     Dates: start: 20220113

REACTIONS (1)
  - Rash pruritic [Recovered/Resolved]
